FAERS Safety Report 5511296-7 (Version None)
Quarter: 2007Q4

REPORT INFORMATION
  Report Type: 
  Country: None (occurrence: None)
  Receive Date: 20071109
  Receipt Date: 20070802
  Transmission Date: 20080405
  Serious: No
  Sender: FDA-Public Use
  Company Number: A0667899A

PATIENT

DRUGS (3)
  1. ALTABAX [Suspect]
     Indication: IMPETIGO
     Route: 061
  2. BACTROBAN [Suspect]
     Indication: IMPETIGO
     Route: 061
  3. NO CONCURRENT MEDICATION [Concomitant]

REACTIONS (2)
  - BURNING SENSATION [None]
  - DRUG INEFFECTIVE [None]
